FAERS Safety Report 14729934 (Version 2)
Quarter: 2019Q3

REPORT INFORMATION
  Report Type: Spontaneous
  Country: US (occurrence: US)
  Receive Date: 20180406
  Receipt Date: 20190731
  Transmission Date: 20191004
  Serious: Yes (Other)
  Sender: FDA-Public Use
  Company Number: US-PFIZER INC-2018143050

PATIENT
  Age: 77 Year
  Sex: Female

DRUGS (16)
  1. PROTONIX [Suspect]
     Active Substance: PANTOPRAZOLE SODIUM
     Dosage: UNK
     Route: 065
     Dates: start: 2000
  2. PREVACID 24 HR [Suspect]
     Active Substance: LANSOPRAZOLE
     Dosage: UNK
     Route: 065
     Dates: start: 2000
  3. MAALOX [ALGELDRATE;MAGNESIUM HYDROXIDE] [Concomitant]
     Active Substance: ALGELDRATE\MAGNESIUM HYDROXIDE
  4. NEXIUM [Suspect]
     Active Substance: ESOMEPRAZOLE MAGNESIUM
     Indication: HERNIA REPAIR
  5. PRILOSEC [Suspect]
     Active Substance: OMEPRAZOLE MAGNESIUM
     Dosage: UNK
     Route: 048
     Dates: start: 2000
  6. PREVACID [Suspect]
     Active Substance: LANSOPRAZOLE
     Dosage: UNK
     Route: 065
     Dates: start: 2000
  7. CIMETIDINE HYDROCHLORIDE. [Concomitant]
     Active Substance: CIMETIDINE HYDROCHLORIDE
  8. NEXIUM [Suspect]
     Active Substance: ESOMEPRAZOLE MAGNESIUM
     Indication: GASTROOESOPHAGEAL REFLUX DISEASE
     Dosage: UNK
     Route: 048
     Dates: start: 2000
  9. ZEGERID [Suspect]
     Active Substance: OMEPRAZOLE\SODIUM BICARBONATE
     Route: 065
     Dates: start: 2000
  10. DIHYDROXYALUMINUM SODIUM CARBONATE [Concomitant]
     Active Substance: DIHYDROXYALUMINUM SODIUM CARBONATE
  11. PEPCID [Concomitant]
     Active Substance: FAMOTIDINE
  12. NEXIUM 24HR [Suspect]
     Active Substance: ESOMEPRAZOLE MAGNESIUM
     Dosage: UNK
     Route: 048
     Dates: start: 2000
  13. PRILOSEC OTC [Suspect]
     Active Substance: OMEPRAZOLE MAGNESIUM
     Dosage: UNK
     Route: 048
     Dates: start: 2000
  14. DEXILANT [Suspect]
     Active Substance: DEXLANSOPRAZOLE
     Dosage: UNK
     Route: 065
     Dates: start: 2000
  15. TUMS [Concomitant]
     Active Substance: CALCIUM CARBONATE
  16. PEPTO-BISMOL [Concomitant]
     Active Substance: BISMUTH SUBSALICYLATE

REACTIONS (1)
  - Chronic kidney disease [Unknown]
